FAERS Safety Report 9128277 (Version 1)
Quarter: 2013Q1

REPORT INFORMATION
  Report Type: Spontaneous
  Country: GB (occurrence: GB)
  Receive Date: 20130228
  Receipt Date: 20130228
  Transmission Date: 20140127
  Serious: Yes (Other)
  Sender: FDA-Public Use
  Company Number: GB-MYLANLABS-2013S1003804

PATIENT
  Sex: Male

DRUGS (9)
  1. SODIUM VALPROATE [Suspect]
     Indication: SCHIZOAFFECTIVE DISORDER
     Route: 065
  2. OLANZAPINE [Suspect]
     Indication: SCHIZOAFFECTIVE DISORDER
     Route: 065
  3. HALOPERIDOL [Suspect]
     Indication: SCHIZOAFFECTIVE DISORDER
     Route: 065
  4. CLOPIXOL [Suspect]
     Route: 065
  5. ZUCLOPENTHIXOL [Suspect]
     Indication: SCHIZOAFFECTIVE DISORDER
     Route: 065
  6. AMISULPRIDE [Concomitant]
     Indication: SCHIZOAFFECTIVE DISORDER
     Route: 065
  7. ARIPIPRAZOLE [Concomitant]
     Indication: SCHIZOAFFECTIVE DISORDER
     Route: 065
  8. QUETIAPINE [Concomitant]
     Indication: SCHIZOAFFECTIVE DISORDER
     Route: 065
  9. LITHIUM [Concomitant]
     Indication: SCHIZOAFFECTIVE DISORDER
     Route: 065

REACTIONS (4)
  - Agranulocytosis [Recovering/Resolving]
  - Neutropenia [Recovered/Resolved]
  - Extrapyramidal disorder [Unknown]
  - Weight increased [Unknown]
